FAERS Safety Report 25195195 (Version 1)
Quarter: 2025Q2

REPORT INFORMATION
  Report Type: Spontaneous
  Country: US (occurrence: US)
  Receive Date: 20250415
  Receipt Date: 20250415
  Transmission Date: 20250716
  Serious: No
  Sender: SANOFI AVENTIS
  Company Number: US-SA-2025SA102967

PATIENT
  Age: 62 Year
  Sex: Male
  Weight: 93.18 kg

DRUGS (16)
  1. DUPIXENT [Suspect]
     Active Substance: DUPILUMAB
     Indication: Dermatitis atopic
     Dosage: 300 MG, QOW
     Route: 058
     Dates: start: 2018, end: 202503
  2. DUPIXENT [Suspect]
     Active Substance: DUPILUMAB
     Dosage: 300 MG, QOW
     Route: 058
     Dates: start: 2025
  3. CLOPIDOGREL [Concomitant]
     Active Substance: CLOPIDOGREL BISULFATE
  4. LISINOPRIL [Concomitant]
     Active Substance: LISINOPRIL
  5. JARDIANCE [Concomitant]
     Active Substance: EMPAGLIFLOZIN
  6. ATORVASTATIN CALCIUM [Concomitant]
     Active Substance: ATORVASTATIN CALCIUM
  7. ASPIRIN [Concomitant]
     Active Substance: ASPIRIN
  8. TACROLIMUS [Concomitant]
     Active Substance: TACROLIMUS
  9. DEVICE [Concomitant]
     Active Substance: DEVICE
  10. HYDROCORTISONE [Concomitant]
     Active Substance: HYDROCORTISONE
  11. LATANOPROST [Concomitant]
     Active Substance: LATANOPROST
  12. DORZOLAMIDE HYDROCHLORIDE [Concomitant]
     Active Substance: DORZOLAMIDE HYDROCHLORIDE
  13. PANTOPRAZOLE SODIUM [Concomitant]
     Active Substance: PANTOPRAZOLE SODIUM
  14. ATORVASTATIN CALCIUM [Concomitant]
     Active Substance: ATORVASTATIN CALCIUM
  15. GLIPIZIDE [Concomitant]
     Active Substance: GLIPIZIDE
  16. METFORMIN HYDROCHLORIDE [Concomitant]
     Active Substance: METFORMIN HYDROCHLORIDE

REACTIONS (1)
  - Localised infection [Recovered/Resolved]

NARRATIVE: CASE EVENT DATE: 20250301
